FAERS Safety Report 4437514-4 (Version None)
Quarter: 2004Q3

REPORT INFORMATION
  Report Type: 
  Country: None (occurrence: None)
  Receive Date: 20040831
  Receipt Date: 20040809
  Transmission Date: 20050211
  Serious: Yes (Hospitalization, Other)
  Sender: FDA-Public Use
  Company Number: FR-JNJFOC-20040503915

PATIENT
  Age: 33 Year
  Sex: Female
  Weight: 70 kg

DRUGS (7)
  1. REMICADE [Suspect]
     Indication: ANKYLOSING SPONDYLITIS
     Route: 042
  2. SOLU-MEDROL [Suspect]
     Indication: ANKYLOSING SPONDYLITIS
     Route: 042
  3. PROPOFOL [Concomitant]
  4. PROPOFOL [Concomitant]
  5. PROPOFOL [Concomitant]
  6. PROPOFOL [Concomitant]
  7. PROPOFOL [Concomitant]

REACTIONS (2)
  - B-CELL UNCLASSIFIABLE LYMPHOMA HIGH GRADE [None]
  - DRUG INTERACTION [None]
